FAERS Safety Report 5165518-5 (Version None)
Quarter: 2006Q4

REPORT INFORMATION
  Report Type: 
  Country: None (occurrence: None)
  Receive Date: 20061128
  Receipt Date: 20061107
  Transmission Date: 20070319
  Serious: Yes (Life-Threatening, Other)
  Sender: FDA-Public Use
  Company Number: 02100-JPN-06-0504

PATIENT
  Age: 74 Year
  Sex: Female

DRUGS (11)
  1. CILOSTAZOL [Suspect]
     Indication: ANGIOPATHY
     Dosage: 100 MG ORAL
     Route: 048
     Dates: start: 20061012, end: 20061012
  2. CILOSTAZOL [Suspect]
     Indication: PROPHYLAXIS
     Dosage: 100 MG ORAL
     Route: 048
     Dates: start: 20061012, end: 20061012
  3. MOLSIDOMINE [Concomitant]
  4. AMLODIPINE [Concomitant]
  5. HYPERCHLOROTHIAZIDE [Concomitant]
  6. THIOCTIC ACID (A-LIPOIC ACID) [Concomitant]
  7. ACETYL-L-CARNITINE [Concomitant]
  8. CIMETHIDINE [Concomitant]
  9. REBAMIPIDE [Concomitant]
  10. LEVOSULPIRIDE [Concomitant]
  11. ISOPHANE INSULIN [Concomitant]

REACTIONS (3)
  - ACUTE PULMONARY OEDEMA [None]
  - ROAD TRAFFIC ACCIDENT [None]
  - WRIST FRACTURE [None]
